FAERS Safety Report 4688679-0 (Version None)
Quarter: 2005Q2

REPORT INFORMATION
  Report Type: 
  Country: None (occurrence: None)
  Receive Date: 20050608
  Receipt Date: 20050209
  Transmission Date: 20051028
  Serious: No
  Sender: FDA-Public Use
  Company Number: 2004-BP-05794BP

PATIENT
  Age: 69 Year
  Sex: Male

DRUGS (4)
  1. SPIRIVA [Suspect]
     Indication: CHRONIC OBSTRUCTIVE PULMONARY DISEASE
     Dosage: 18 MCG (18 MCG, 18 MCG DAILY), IH
     Route: 055
     Dates: start: 20040624, end: 20040712
  2. ALBUTEROL [Concomitant]
  3. BUDESONIDE [Concomitant]
  4. OXYGEN [Concomitant]

REACTIONS (2)
  - CHOKING SENSATION [None]
  - DYSPNOEA [None]
